FAERS Safety Report 19962691 (Version 2)
Quarter: 2021Q4

REPORT INFORMATION
  Report Type: Spontaneous
  Country: DE (occurrence: DE)
  Receive Date: 20211018
  Receipt Date: 20211028
  Transmission Date: 20220303
  Serious: Yes (Hospitalization, Other)
  Sender: FDA-Public Use
  Company Number: NVSC2021DE234629

PATIENT
  Sex: Male

DRUGS (5)
  1. OLANZAPINE [Suspect]
     Active Substance: OLANZAPINE
     Indication: Mania
     Dosage: 7.5 MG, QD
     Route: 065
  2. FLUPENTIXOL [Interacting]
     Active Substance: FLUPENTIXOL
     Indication: Mania
     Dosage: 30 MG PER MONTH, DAILY DOSE UNKNOWN
     Route: 065
  3. FLUPENTIXOL DIHYDROCHLORIDE [Interacting]
     Active Substance: FLUPENTIXOL DIHYDROCHLORIDE
     Indication: Mania
     Dosage: 8 MG, QD
     Route: 065
  4. VALPROIC ACID [Interacting]
     Active Substance: VALPROIC ACID
     Indication: Mania
     Dosage: 1600 MG, QD
     Route: 065
  5. VITAMIN K [Suspect]
     Active Substance: PHYTONADIONE
     Indication: Coagulopathy
     Dosage: UNKNOWN
     Route: 065

REACTIONS (1)
  - Acute hepatic failure [Unknown]
